FAERS Safety Report 24195953 (Version 1)
Quarter: 2024Q3

REPORT INFORMATION
  Report Type: Spontaneous
  Country: US (occurrence: None)
  Receive Date: 20240804
  Receipt Date: 20240804
  Transmission Date: 20241016
  Serious: Yes (Hospitalization)
  Sender: Public
  Company Number: None

PATIENT
  Sex: Male

DRUGS (1)
  1. PERMETHRIN [Suspect]
     Active Substance: PERMETHRIN
     Indication: Acarodermatitis
     Dosage: OTHER QUANTITY : 60 GRAMS?OTHER FREQUENCY : ONCE?
     Route: 061
     Dates: start: 20240510, end: 20240510

REACTIONS (1)
  - Rash [None]

NARRATIVE: CASE EVENT DATE: 20240510
